FAERS Safety Report 4600448-6 (Version None)
Quarter: 2005Q1

REPORT INFORMATION
  Report Type: 
  Country: None (occurrence: None)
  Receive Date: 20050304
  Receipt Date: 20050222
  Transmission Date: 20050727
  Serious: Yes (Life-Threatening)
  Sender: FDA-Public Use
  Company Number: 2005-DE-00706GD

PATIENT
  Age: 21 Year

DRUGS (4)
  1. MORPHINE [Suspect]
     Dosage: (SEE TEXT),
  2. VANCOMYCIN [Suspect]
     Dosage: (SEE TEXT),
  3. INSULIN [Suspect]
     Dosage: (SEE TEXT),
  4. EPINEPHRINE [Suspect]
     Dosage: (SEE TEXT),

REACTIONS (1)
  - MEDICATION ERROR [None]
